FAERS Safety Report 5180233-X (Version None)
Quarter: 2006Q4

REPORT INFORMATION
  Report Type: 
  Country: None (occurrence: None)
  Receive Date: 20061219
  Receipt Date: 20060914
  Transmission Date: 20070319
  Serious: No
  Sender: FDA-Public Use
  Company Number: US-AMGEN-KDL193715

PATIENT
  Sex: Female

DRUGS (11)
  1. ENBREL [Suspect]
     Indication: RHEUMATOID ARTHRITIS
     Route: 058
     Dates: start: 20050515
  2. METHOTREXATE [Concomitant]
     Dates: start: 20060912
  3. METHOTREXATE [Concomitant]
     Dates: start: 20060912
  4. ATENOL [Concomitant]
  5. CELEXA [Concomitant]
  6. FLEXERIL [Concomitant]
  7. FOLIC ACID [Concomitant]
  8. HCT [Concomitant]
  9. LORAZEPAM [Concomitant]
  10. PREDNISONE TAB [Concomitant]
  11. SYNTHROID [Concomitant]

REACTIONS (1)
  - NASOPHARYNGITIS [None]
